FAERS Safety Report 17528680 (Version 1)
Quarter: 2020Q1

REPORT INFORMATION
  Report Type: Spontaneous
  Country: SE (occurrence: SE)
  Receive Date: 20200312
  Receipt Date: 20200312
  Transmission Date: 20200409
  Serious: Yes (Hospitalization)
  Sender: FDA-Public Use
  Company Number: SE-TEVA-2020-SE-1198216

PATIENT
  Age: 31 Year
  Sex: Female

DRUGS (3)
  1. CIPROFLOXACIN. [Suspect]
     Active Substance: CIPROFLOXACIN
     Dosage: CIPROFLOXACIN 500 MG, 9 ST
     Dates: start: 20200214, end: 20200214
  2. OXASCAND [Suspect]
     Active Substance: OXAZEPAM
     Dosage: 20 ST
     Dates: start: 20200214, end: 20200214
  3. IPREN [Suspect]
     Active Substance: IBUPROFEN
     Dosage: 28 ST LPREN, 400 MG
     Dates: start: 20200214, end: 20200214

REACTIONS (4)
  - Vomiting [Recovered/Resolved]
  - Overdose [Recovered/Resolved]
  - Toxicity to various agents [Recovered/Resolved]
  - Blood creatinine increased [Recovered/Resolved]

NARRATIVE: CASE EVENT DATE: 20200214
